FAERS Safety Report 24738865 (Version 1)
Quarter: 2024Q4

REPORT INFORMATION
  Report Type: Spontaneous
  Country: US (occurrence: US)
  Receive Date: 20241216
  Receipt Date: 20241216
  Transmission Date: 20250114
  Serious: No
  Sender: ALVOGEN
  Company Number: US-ALVOGEN-2024093281

PATIENT
  Sex: Male

DRUGS (2)
  1. FENTANYL [Suspect]
     Active Substance: FENTANYL
     Indication: Back pain
     Dosage: 100MCG/HR?LAST 2 BOXES
     Route: 062
  2. FENTANYL [Suspect]
     Active Substance: FENTANYL
     Indication: Back pain
     Dosage: 100MCG/HR?EXPIRY: UU-DEC-2026?GTIN: 00347781428471?MANUFACTURING DATE: 07-DEC-2023
     Route: 062
     Dates: start: 20240224

REACTIONS (1)
  - Drug effect less than expected [Unknown]
